FAERS Safety Report 20064371 (Version 1)
Quarter: 2021Q4

REPORT INFORMATION
  Report Type: Spontaneous
  Country: US (occurrence: US)
  Receive Date: 20211112
  Receipt Date: 20211112
  Transmission Date: 20220303
  Serious: No
  Sender: FDA-Public Use
  Company Number: US-Flexion Therapeutics, Inc.-2021FLS000092

PATIENT
  Age: 78 Year
  Sex: Female

DRUGS (12)
  1. ZILRETTA [Suspect]
     Active Substance: TRIAMCINOLONE ACETONIDE
     Indication: Osteoarthritis
     Route: 014
     Dates: start: 20210719, end: 20210719
  2. RAMIPRIL [Concomitant]
     Active Substance: RAMIPRIL
     Indication: Product used for unknown indication
  3. LEVOTHYROXINE [Concomitant]
     Active Substance: LEVOTHYROXINE
     Indication: Product used for unknown indication
  4. PRAVASTATIN [Concomitant]
     Active Substance: PRAVASTATIN
     Indication: Product used for unknown indication
  5. ASPIRIN [Concomitant]
     Active Substance: ASPIRIN
     Indication: Product used for unknown indication
  6. CLOPIDOGREL [Concomitant]
     Active Substance: CLOPIDOGREL BISULFATE
     Indication: Product used for unknown indication
  7. HUMALOG [Concomitant]
     Active Substance: INSULIN LISPRO
     Indication: Type 1 diabetes mellitus
     Dosage: 12AM, 3AM, 9AM, 3PM AND 10PM
  8. HUMALOG [Concomitant]
     Active Substance: INSULIN LISPRO
     Dosage: 12AM
  9. HUMALOG [Concomitant]
     Active Substance: INSULIN LISPRO
     Dosage: 3AM
  10. HUMALOG [Concomitant]
     Active Substance: INSULIN LISPRO
     Dosage: 9AM AND 3PM
  11. HUMALOG [Concomitant]
     Active Substance: INSULIN LISPRO
     Dosage: 10AM
  12. HUMALOG [Concomitant]
     Active Substance: INSULIN LISPRO
     Dosage: 10PM

REACTIONS (1)
  - Blood glucose increased [Not Recovered/Not Resolved]

NARRATIVE: CASE EVENT DATE: 20210719
